FAERS Safety Report 6319812-2 (Version None)
Quarter: 2009Q3

REPORT INFORMATION
  Report Type: 
  Country: None (occurrence: None)
  Receive Date: 20090822
  Receipt Date: 20080929
  Transmission Date: 20100115
  Serious: No
  Sender: FDA-Public Use
  Company Number: US-ABBOTT-08P-163-0478570-00

PATIENT
  Sex: Male
  Weight: 84.898 kg

DRUGS (4)
  1. NIASPAN [Suspect]
     Indication: BLOOD CHOLESTEROL INCREASED
     Route: 048
     Dates: start: 20080915, end: 20080929
  2. ASPIRIN [Concomitant]
     Indication: PROPHYLAXIS
     Route: 048
  3. ATORVASTATIN CALCIUM [Concomitant]
     Indication: BLOOD TRIGLYCERIDES DECREASED
     Route: 048
  4. SIL-NORBORAL [Concomitant]
     Indication: DIABETES MELLITUS
     Dosage: 2.5/500MG IN AM 1.25/250MG IN THE PM
     Route: 048

REACTIONS (1)
  - BLOOD GLUCOSE INCREASED [None]
